FAERS Safety Report 25774188 (Version 1)
Quarter: 2025Q3

REPORT INFORMATION
  Report Type: Spontaneous
  Country: US (occurrence: None)
  Receive Date: 20250905
  Receipt Date: 20250905
  Transmission Date: 20251021
  Serious: No
  Sender: FDA-CTU
  Company Number: None

PATIENT
  Age: 18 Year
  Sex: Female
  Weight: 43.2 kg

DRUGS (1)
  1. PROZAC [Suspect]
     Active Substance: FLUOXETINE HYDROCHLORIDE
     Indication: Generalised anxiety disorder
     Dates: start: 20220415, end: 20230816

REACTIONS (4)
  - Diplopia [None]
  - Tic [None]
  - Tic [None]
  - Therapy interrupted [None]

NARRATIVE: CASE EVENT DATE: 20230128
